FAERS Safety Report 20590866 (Version 1)
Quarter: 2022Q1

REPORT INFORMATION
  Report Type: Spontaneous
  Country: US (occurrence: US)
  Receive Date: 20220314
  Receipt Date: 20220314
  Transmission Date: 20220423
  Serious: No
  Sender: FDA-Public Use
  Company Number: US-SANOFI-01004177

PATIENT

DRUGS (12)
  1. ELITEK [Suspect]
     Active Substance: RASBURICASE
     Dosage: 1.5 MG
  2. ELITEK [Suspect]
     Active Substance: RASBURICASE
     Dosage: 7.5 MG
  3. APIDRA SOLOSTAR [Suspect]
     Active Substance: INSULIN GLULISINE
     Dosage: UNK
  4. APIDRA [Suspect]
     Active Substance: INSULIN GLULISINE
     Dosage: UNK
  5. SOLIQUA 100/33 [Suspect]
     Active Substance: INSULIN GLARGINE\LIXISENATIDE
     Dosage: UNK
  6. ADMELOG [Suspect]
     Active Substance: INSULIN LISPRO
     Dosage: UNK
  7. TUBERSOL [Suspect]
     Active Substance: TUBERCULIN PURIFIED PROTEIN DERIVATIVE
     Dosage: UNK
  8. LANTUS SOLOSTAR [Suspect]
     Active Substance: INSULIN GLARGINE
     Dosage: UNK
  9. LANTUS [Suspect]
     Active Substance: INSULIN GLARGINE
     Dosage: UNK
  10. FLUBLOK QUADRIVALENT NOS [Suspect]
     Active Substance: INFLUENZA VIRUS VACCINE
  11. FLUZONE QUADRIVALENT NOS [Suspect]
     Active Substance: INFLUENZA A VIRUS A/CALIFORNIA/7/2009 X-179A (H1N1) ANTIGEN (FORMALDEHYDE INACTIVATED)\INFLUENZA A V
  12. ADMELOG [Suspect]
     Active Substance: INSULIN LISPRO
     Dosage: UNK

REACTIONS (1)
  - Product temperature excursion issue [Unknown]
